FAERS Safety Report 8395317-2 (Version None)
Quarter: 2012Q2

REPORT INFORMATION
  Report Type: 
  Country: None (occurrence: None)
  Receive Date: 20120524
  Receipt Date: 20120511
  Transmission Date: 20120825
  Serious: Yes (Hospitalization)
  Sender: FDA-Public Use
  Company Number: UTC-018701

PATIENT
  Age: 37 Year
  Sex: Female
  Weight: 97.7 kg

DRUGS (3)
  1. TYVASO [Suspect]
     Indication: PULMONARY ARTERIAL HYPERTENSION
     Dosage: 216 MCG (54 MCG, 4 IN 1 D), INHALATION
     Route: 055
     Dates: start: 20110712
  2. TRACLEER [Concomitant]
  3. ADCIRCA [Concomitant]

REACTIONS (2)
  - TUBERCULOSIS [None]
  - HAEMOPTYSIS [None]
